FAERS Safety Report 5545518-3 (Version None)
Quarter: 2007Q4

REPORT INFORMATION
  Report Type: 
  Country: None (occurrence: None)
  Receive Date: 20071206
  Receipt Date: 20071122
  Transmission Date: 20080405
  Serious: Yes (Other)
  Sender: FDA-Public Use
  Company Number: CIP07002344

PATIENT
  Age: 72 Year
  Sex: Male

DRUGS (5)
  1. ACTONEL [Suspect]
     Indication: OSTEOPOROSIS
     Dosage: 2.5 MG DAILY, ORAL
     Route: 048
     Dates: start: 20030101, end: 20071024
  2. PREDNISOLONE [Concomitant]
  3. MUCOSTA (REBAMIPIDE) [Concomitant]
  4. ZANTAC 150 [Concomitant]
  5. ALLOPURINOL [Concomitant]

REACTIONS (3)
  - FEELING ABNORMAL [None]
  - LOSS OF CONSCIOUSNESS [None]
  - SOMNOLENCE [None]
